FAERS Safety Report 6843478-6 (Version None)
Quarter: 2010Q3

REPORT INFORMATION
  Report Type: 
  Country: None (occurrence: None)
  Receive Date: 20100715
  Receipt Date: 20100707
  Transmission Date: 20110219
  Serious: Yes (Other)
  Sender: FDA-Public Use
  Company Number: GB-JNJFOC-20100602337

PATIENT
  Sex: Female

DRUGS (6)
  1. SPORANOX [Suspect]
     Indication: ASPERGILLOSIS
     Route: 048
  2. TACROLIMUS [Concomitant]
     Indication: TRANSPLANT
     Route: 065
  3. MYCOPHENOLATE MOFETIL [Concomitant]
     Indication: TRANSPLANT
     Route: 065
  4. PREDNISOLONE [Concomitant]
     Indication: TRANSPLANT
     Route: 065
  5. ALENDRONATE SODIUM [Concomitant]
     Indication: TRANSPLANT
     Route: 065
  6. PRAVASTATIN [Concomitant]
     Indication: TRANSPLANT
     Route: 065

REACTIONS (1)
  - GASTROOESOPHAGEAL REFLUX DISEASE [None]
